FAERS Safety Report 14270427 (Version 1)
Quarter: 2017Q4

REPORT INFORMATION
  Report Type: Spontaneous
  Country: DK (occurrence: DK)
  Receive Date: 20171211
  Receipt Date: 20171211
  Transmission Date: 20180321
  Serious: Yes (Disabling)
  Sender: FDA-Public Use
  Company Number: DK-OTSUKA-2017_021988

PATIENT
  Sex: Male
  Weight: 41.5 kg

DRUGS (2)
  1. OXAPAX [Concomitant]
     Active Substance: OXAZEPAM
     Indication: ANXIETY
     Dosage: 7.5 MG, PRN
     Route: 048
     Dates: start: 20160311
  2. ABILIFY [Suspect]
     Active Substance: ARIPIPRAZOLE
     Indication: TIC
     Dosage: 1 DF, UNK (1 DF = 1ML + 3ML DAILY)
     Route: 048
     Dates: start: 2016

REACTIONS (5)
  - Product use in unapproved indication [Unknown]
  - Depressed mood [Recovering/Resolving]
  - Disturbance in attention [Recovered/Resolved]
  - Anxiety [Recovering/Resolving]
  - Encopresis [Recovered/Resolved]

NARRATIVE: CASE EVENT DATE: 2016
